FAERS Safety Report 4869386-8 (Version None)
Quarter: 2005Q4

REPORT INFORMATION
  Report Type: 
  Country: None (occurrence: None)
  Receive Date: 20051230
  Receipt Date: 20050929
  Transmission Date: 20060501
  Serious: Yes (Hospitalization, Disabling, Other)
  Sender: FDA-Public Use
  Company Number: US-MERCK-0510USA00184

PATIENT
  Age: 72 Year
  Sex: Male
  Weight: 91 kg

DRUGS (26)
  1. VIOXX [Suspect]
     Indication: ARTHRITIS
     Route: 048
     Dates: start: 20000201, end: 20040901
  2. ACCUPRIL [Concomitant]
     Route: 065
  3. K-TAB [Concomitant]
     Route: 065
  4. PEPCID [Concomitant]
     Route: 065
  5. VANCENASE [Concomitant]
     Route: 065
  6. ZITHROMAX [Concomitant]
     Route: 065
  7. PREDNISONE [Concomitant]
     Route: 065
  8. BENZONATATE [Concomitant]
     Route: 065
  9. ERY-TAB [Concomitant]
     Route: 065
  10. CECLOR [Concomitant]
     Route: 065
  11. MAXAIR [Concomitant]
     Route: 065
  12. RHINOCORT [Concomitant]
     Route: 065
  13. CEPHALEXIN [Concomitant]
     Route: 065
  14. DIFLUCAN [Concomitant]
     Route: 065
  15. FLUOCINONIDE [Concomitant]
     Route: 065
  16. LEXAPRO [Concomitant]
     Route: 065
  17. HYDROCHLOROTHIAZIDE [Concomitant]
     Route: 065
  18. ENABLEX [Concomitant]
     Route: 065
  19. PROSCAR [Concomitant]
     Route: 065
  20. LEVAQUIN [Concomitant]
     Route: 065
  21. SULFAMETHOXAZOLE [Concomitant]
     Route: 065
  22. AMOXICILLIN [Concomitant]
     Route: 065
  23. OMNICEF [Concomitant]
     Route: 065
  24. HYDROCODONE BITARTRATE + ACETAMINOPHEN [Concomitant]
     Route: 065
  25. CIPRO [Concomitant]
     Route: 065
  26. NEXIUM [Concomitant]
     Route: 065

REACTIONS (12)
  - ARTHRALGIA [None]
  - CARPAL TUNNEL SYNDROME [None]
  - CEREBROVASCULAR ACCIDENT [None]
  - DEPRESSION [None]
  - ERECTILE DYSFUNCTION [None]
  - HAEMATOCHEZIA [None]
  - HYPERCHOLESTEROLAEMIA [None]
  - HYPERTENSION [None]
  - HYPOTHYROIDISM [None]
  - PLATELET AGGREGATION [None]
  - POLLAKIURIA [None]
  - RASH [None]
